APPROVED DRUG PRODUCT: NALOXONE HYDROCHLORIDE
Active Ingredient: NALOXONE HYDROCHLORIDE
Strength: 0.4MG/ML
Dosage Form/Route: INJECTABLE;INJECTION
Application: A070256 | Product #001 | TE Code: AP
Applicant: HOSPIRA INC
Approved: Jan 7, 1987 | RLD: No | RS: Yes | Type: RX